FAERS Safety Report 5421860-1 (Version None)
Quarter: 2007Q3

REPORT INFORMATION
  Report Type: 
  Country: None (occurrence: None)
  Receive Date: 20070820
  Receipt Date: 20070803
  Transmission Date: 20080115
  Serious: Yes (Hospitalization)
  Sender: FDA-Public Use
  Company Number: DSA_30429_2007

PATIENT
  Age: 44 Year
  Sex: Female

DRUGS (4)
  1. DILTIAZEM [Suspect]
     Indication: PULMONARY HYPERTENSION
     Dosage: (300 MG QD ORAL)
     Route: 048
     Dates: start: 20070706, end: 20070709
  2. EZETIMIBE [Suspect]
     Indication: DYSLIPIDAEMIA
     Dosage: (1 DF QD EZETIMIBE (10 MG) + SIMVASTATIN (20 MG) ORAL)
     Route: 048
     Dates: start: 20070706, end: 20070709
  3. T4 [Concomitant]
  4. LIOTHYRONINE SODIUM [Concomitant]

REACTIONS (2)
  - PUSTULAR PSORIASIS [None]
  - RASH [None]
